FAERS Safety Report 8133186-6 (Version None)
Quarter: 2012Q1

REPORT INFORMATION
  Report Type: 
  Country: None (occurrence: None)
  Receive Date: 20120213
  Receipt Date: 20120130
  Transmission Date: 20120608
  Serious: Yes (Death)
  Sender: FDA-Public Use
  Company Number: JP-INCYTE CORPORATION-2012IN000084

PATIENT
  Sex: Female
  Weight: 152 kg

DRUGS (10)
  1. INC424 [Suspect]
     Indication: MYELOFIBROSIS
     Dosage: 15 MG, BID
     Route: 048
     Dates: start: 20111031, end: 20111127
  2. INC424 [Suspect]
     Dosage: 5 MG, BID
     Route: 048
     Dates: start: 20111212, end: 20120110
  3. ONEALFA [Concomitant]
  4. LENDORMIN [Concomitant]
  5. ALINAMIN F [Concomitant]
  6. ADALAT [Concomitant]
  7. DIAZEPAM [Concomitant]
     Dosage: UNK
     Dates: start: 20111214
  8. PREDNISOLONE [Concomitant]
  9. FAMOTIDINE [Concomitant]
  10. LOXOPROFEN [Concomitant]

REACTIONS (1)
  - SEPTIC SHOCK [None]
